FAERS Safety Report 24996761 (Version 1)
Quarter: 2025Q1

REPORT INFORMATION
  Report Type: Spontaneous
  Country: FR (occurrence: FR)
  Receive Date: 20250221
  Receipt Date: 20250221
  Transmission Date: 20250409
  Serious: Yes (Other)
  Sender: ELI LILLY AND COMPANY
  Company Number: FR-ELI_LILLY_AND_COMPANY-FR202502008425

PATIENT
  Age: 76 Year
  Sex: Male

DRUGS (1)
  1. TALTZ [Suspect]
     Active Substance: IXEKIZUMAB
     Indication: Psoriasis
     Route: 065
     Dates: start: 2022

REACTIONS (1)
  - Bladder cancer [Recovered/Resolved]

NARRATIVE: CASE EVENT DATE: 20231201
